FAERS Safety Report 15916274 (Version 1)
Quarter: 2019Q1

REPORT INFORMATION
  Report Type: Spontaneous
  Country: US (occurrence: US)
  Receive Date: 20190114
  Receipt Date: 20190114
  Transmission Date: 20190417
  Serious: No
  Sender: FDA-Public Use
  Company Number: None

PATIENT
  Age: 58 Year
  Sex: Male

DRUGS (1)
  1. ENTECAVIR  0.5MG TAB (X30) [Suspect]
     Active Substance: ENTECAVIR
     Indication: HEPATITIS
     Dates: start: 201804

REACTIONS (2)
  - Fatigue [None]
  - Exercise tolerance decreased [None]

NARRATIVE: CASE EVENT DATE: 20180416
